FAERS Safety Report 9417093 (Version 1)
Quarter: 2013Q3

REPORT INFORMATION
  Report Type: Spontaneous
  Country: DE (occurrence: None)
  Receive Date: 20130722
  Receipt Date: 20130722
  Transmission Date: 20140515
  Serious: Yes (Other)
  Sender: FDA-Public Use
  Company Number: VAL_02647_2013

PATIENT
  Sex: 0

DRUGS (15)
  1. METOPROLOL (METOPROLOL-METOPROLOL TARTRATE) [Suspect]
     Indication: PRODUCT USED FOR UNKNOWN INDICATION
     Route: 064
  2. ALLOPURINOL [Suspect]
     Indication: PRODUCT USED FOR UNKNOWN INDICATION
     Route: 064
  3. HYDROCHLOROTHIAZIDE (HYDROCHLOROTHIAZIDE) [Suspect]
     Indication: PRODUCT USED FOR UNKNOWN INDICATION
     Route: 064
  4. METFORMIN (METFORMIN) [Suspect]
     Indication: PRODUCT USED FOR UNKNOWN INDICATION
     Route: 064
  5. RAMIPRIL (RAMIPRIL) [Suspect]
     Indication: PRODUCT USED FOR UNKNOWN INDICATION
     Route: 064
  6. METHYLDOPA (METHYLDOPA) [Suspect]
     Indication: PRODUCT USED FOR UNKNOWN INDICATION
     Route: 064
  7. AMLODIPINE (AMLODIPINE) [Suspect]
     Indication: PRODUCT USED FOR UNKNOWN INDICATION
     Route: 064
  8. SIMVASTATIN (SIMVASTATIN) [Suspect]
     Indication: PRODUCT USED FOR UNKNOWN INDICATION
     Route: 064
  9. VENLAFAXINE (VENLAFAXINE) [Suspect]
     Indication: PRODUCT USED FOR UNKNOWN INDICATION
     Route: 064
  10. PARACETAMOL (PARACETAMOL) [Suspect]
     Indication: PRODUCT USED FOR UNKNOWN INDICATION
     Route: 064
  11. NALOXONE [Suspect]
     Indication: PRODUCT USED FOR UNKNOWN INDICATION
     Route: 064
  12. ACETYLSALICYLIC ACID [Suspect]
     Indication: PRODUCT USED FOR UNKNOWN INDICATION
     Route: 064
  13. TILIDINE [Suspect]
     Indication: PRODUCT USED FOR UNKNOWN INDICATION
     Route: 064
  14. INSULIN (INSULIN) [Suspect]
     Indication: PRODUCT USED FOR UNKNOWN INDICATION
     Route: 064
  15. INSULIN LISPRO (INSULIN LISPRO) [Suspect]
     Indication: PRODUCT USED FOR UNKNOWN INDICATION
     Route: 064

REACTIONS (3)
  - Exposure during pregnancy [None]
  - Atrial septal defect [None]
  - Pulmonary artery stenosis [None]
